FAERS Safety Report 6808769-3 (Version None)
Quarter: 2010Q2

REPORT INFORMATION
  Report Type: 
  Country: None (occurrence: None)
  Receive Date: 20100630
  Receipt Date: 20091006
  Transmission Date: 20101027
  Serious: No
  Sender: FDA-Public Use
  Company Number: US-PFIZER INC-2009261073

PATIENT
  Sex: Male
  Weight: 111 kg

DRUGS (12)
  1. TIKOSYN [Suspect]
     Indication: ATRIAL FIBRILLATION
     Dosage: 500 UG, UNK
     Dates: start: 20090601
  2. CARDIZEM [Concomitant]
  3. COSOPT [Concomitant]
  4. WARFARIN [Concomitant]
     Dosage: UNK
  5. GABAPENTIN [Concomitant]
     Dosage: UNK
  6. IBUPROFEN [Concomitant]
     Dosage: UNK
  7. PRILOSEC [Concomitant]
     Dosage: UNK
  8. TRAVATAN [Concomitant]
     Indication: GLAUCOMA
     Dosage: UNK
  9. HERBAL PREPARATION [Concomitant]
     Dosage: UNK
  10. NICOTINAMIDE [Concomitant]
     Dosage: UNK
  11. VITAMIN B15 [Concomitant]
     Dosage: UNK
  12. TRAMADOL HYDROCHLORIDE [Concomitant]

REACTIONS (6)
  - ABDOMINAL DISTENSION [None]
  - ABDOMINAL PAIN UPPER [None]
  - FEELING ABNORMAL [None]
  - PAIN [None]
  - SENSATION OF PRESSURE [None]
  - VOMITING [None]
